FAERS Safety Report 5811955-2 (Version None)
Quarter: 2008Q3

REPORT INFORMATION
  Report Type: 
  Country: None (occurrence: None)
  Receive Date: 20080716
  Receipt Date: 20080704
  Transmission Date: 20090109
  Serious: Yes (Other)
  Sender: FDA-Public Use
  Company Number: DE-ELI_LILLY_AND_COMPANY-DE200807000996

PATIENT
  Sex: Female

DRUGS (5)
  1. CYMBALTA [Suspect]
     Indication: DEPRESSION
     Dosage: 60 MG, DAILY (1/D)
     Route: 048
  2. RAMIPRIL [Concomitant]
     Dosage: UNK, UNK
  3. METOHEXAL [Concomitant]
     Dosage: UNK, UNK
  4. EUTHYROX [Concomitant]
     Dosage: UNK, UNK
  5. NITROFURANTOIN [Concomitant]
     Dosage: UNK, UNK

REACTIONS (2)
  - ELECTROCARDIOGRAM ST SEGMENT DEPRESSION [None]
  - WEIGHT INCREASED [None]
